FAERS Safety Report 9439780 (Version 1)
Quarter: 2013Q3

REPORT INFORMATION
  Report Type: Spontaneous
  Country: US (occurrence: US)
  Receive Date: 20130805
  Receipt Date: 20130805
  Transmission Date: 20140515
  Serious: Yes (Hospitalization, Other)
  Sender: FDA-Public Use
  Company Number: US-JNJFOC-20130714589

PATIENT
  Age: 87 Year
  Sex: Female

DRUGS (1)
  1. XARELTO [Suspect]
     Indication: DEEP VEIN THROMBOSIS
     Route: 048

REACTIONS (6)
  - Prothrombin time prolonged [Unknown]
  - International normalised ratio increased [Unknown]
  - Sepsis [Unknown]
  - Fall [Unknown]
  - Anaemia [Unknown]
  - Syncope [Unknown]
